FAERS Safety Report 5290688-8 (Version None)
Quarter: 2007Q2

REPORT INFORMATION
  Report Type: 
  Country: None (occurrence: None)
  Receive Date: 20070405
  Receipt Date: 20070405
  Transmission Date: 20071010
  Serious: No
  Sender: FDA-Public Use
  Company Number: None

PATIENT
  Age: 39 Year
  Sex: Male
  Weight: 107.5 kg

DRUGS (13)
  1. NEOMYCIN [Suspect]
     Indication: ENCEPHALOPATHY
     Dosage: 2 GM PO Q 12 HOURS
     Route: 048
     Dates: start: 20060422, end: 20060501
  2. APAP TAB [Concomitant]
  3. INSULIN [Concomitant]
  4. DIPHENHYDRAMINE HCL [Concomitant]
  5. FERROUS SULFATE TAB [Concomitant]
  6. FUROSEMIDE [Concomitant]
  7. LACTULOSE [Concomitant]
  8. LAMIVUDINE [Concomitant]
  9. LANSOPRAZOLE [Concomitant]
  10. LORAZEPAM [Concomitant]
  11. DULOXIDINE [Concomitant]
  12. PROPRANOLOL [Concomitant]
  13. SPIRONOLACTONE [Concomitant]

REACTIONS (1)
  - BLOOD CREATINE INCREASED [None]
